FAERS Safety Report 8716262 (Version 2)
Quarter: 2012Q4

REPORT INFORMATION
  Report Type: Report from Study
  Country: JP (occurrence: JP)
  Receive Date: 20120810
  Receipt Date: 20121213
  Transmission Date: 20130627
  Serious: Yes (Hospitalization)
  Sender: FDA-Public Use
  Company Number: JP-009507513-1207JPN012864

PATIENT
  Age: 57 Year
  Sex: Female
  Weight: 50 kg

DRUGS (16)
  1. PEGINTRON [Suspect]
     Indication: CHRONIC HEPATITIS C
     Dosage: 1.5 Microgram per kilogram/80 microgram per kilogram,per week
     Route: 058
     Dates: start: 20120522, end: 20120529
  2. PEGINTRON [Suspect]
     Dosage: 1 Microgram per kilogram, qw
     Route: 058
     Dates: start: 20120605, end: 20121030
  3. REBETOL [Suspect]
     Indication: CHRONIC HEPATITIS C
     Route: 048
     Dates: start: 20120522, end: 20120531
  4. REBETOL [Suspect]
     Dosage: 600 mg, qd
     Route: 048
     Dates: start: 20120605, end: 20120709
  5. REBETOL [Suspect]
     Dosage: 400 mg, qd
     Route: 048
     Dates: start: 20120710, end: 20121105
  6. TELAVIC [Suspect]
     Indication: CHRONIC HEPATITIS C
     Dosage: 2250 mg,qd
     Route: 048
     Dates: start: 20120522, end: 20120531
  7. TELAVIC [Suspect]
     Dosage: 1500 mg, qd
     Route: 048
     Dates: start: 20120605
  8. URSO [Concomitant]
     Indication: HEPATITIS C
     Dosage: 600 mg, qd
     Route: 048
  9. THYRADIN [Concomitant]
     Indication: HYPOTHYROIDISM
     Dosage: 50 Microgram, formulation :NOS
     Route: 048
  10. THYRADIN [Concomitant]
     Dosage: 62.5 Microgram, formulation: POR
     Route: 048
     Dates: start: 20120821
  11. ERISPAN [Concomitant]
     Indication: PARKINSON^S DISEASE
     Dosage: 0.5 mg, qd, formulation:POR
     Route: 048
  12. AMAZOLON [Concomitant]
     Indication: PARKINSON^S DISEASE
     Dosage: 150 mg, qd, formulation:POR
     Route: 048
  13. CARBIDOPA (+) LEVODOPA [Concomitant]
     Indication: PARKINSON^S DISEASE
     Dosage: 300 mg, qd, formulation: POR
     Route: 048
  14. BI SIFROL [Concomitant]
     Indication: PARKINSON^S DISEASE
     Dosage: 1.5 mg, qd, formulation: POR
     Route: 048
  15. EXCEGRAN [Concomitant]
     Indication: PARKINSON^S DISEASE
     Dosage: 100 mg, qd, formulation:POR
     Route: 048
  16. MAGLAX (MAGNESIUM OXIDE) [Concomitant]
     Indication: PARKINSON^S DISEASE
     Dosage: 990 mg, qd, formulation: POR
     Route: 048

REACTIONS (6)
  - Nausea [Recovering/Resolving]
  - Neutrophil count decreased [Recovered/Resolved]
  - Hyperuricaemia [None]
  - Decreased appetite [None]
  - Anaemia [None]
  - Hypothyroidism [None]
